FAERS Safety Report 6336232-5 (Version None)
Quarter: 2009Q3

REPORT INFORMATION
  Report Type: 
  Country: None (occurrence: None)
  Receive Date: 20090901
  Receipt Date: 20090824
  Transmission Date: 20100115
  Serious: Yes (Hospitalization, Other)
  Sender: FDA-Public Use
  Company Number: PHHY2009PL35998

PATIENT
  Sex: Male
  Weight: 108 kg

DRUGS (2)
  1. MYFORTIC [Suspect]
     Indication: IMMUNOSUPPRESSION
     Dosage: 720 MG, BID
     Route: 048
     Dates: start: 20090708, end: 20090824
  2. MILURIT [Concomitant]
     Indication: GOUT
     Dosage: 300 MG, UNK
     Dates: start: 20060901, end: 20090822

REACTIONS (8)
  - BLOOD CREATININE INCREASED [None]
  - CYTOMEGALOVIRUS INFECTION [None]
  - DIARRHOEA [None]
  - GASTRITIS [None]
  - GENERAL PHYSICAL HEALTH DETERIORATION [None]
  - NAUSEA [None]
  - OESOPHAGITIS [None]
  - VOMITING [None]
